FAERS Safety Report 9184692 (Version 1)
Quarter: 2013Q1

REPORT INFORMATION
  Report Type: Report from Study
  Country: ZA (occurrence: ZA)
  Receive Date: 20130324
  Receipt Date: 20130324
  Transmission Date: 20140127
  Serious: Yes (Hospitalization)
  Sender: FDA-Public Use
  Company Number: ZA-ROCHE-1202694

PATIENT
  Age: 24 Year
  Sex: Female

DRUGS (4)
  1. MIRCERA [Suspect]
     Indication: NEPHROGENIC ANAEMIA
     Route: 065
     Dates: start: 201101
  2. MIRCERA [Suspect]
     Route: 065
     Dates: start: 201109, end: 201206
  3. MIRCERA [Suspect]
     Route: 065
     Dates: start: 201207
  4. RECORMON [Concomitant]
     Route: 065
     Dates: start: 201001

REACTIONS (1)
  - Renal surgery [Unknown]
